FAERS Safety Report 7353844-0 (Version None)
Quarter: 2011Q1

REPORT INFORMATION
  Report Type: 
  Country: None (occurrence: None)
  Receive Date: 20110315
  Receipt Date: 20110309
  Transmission Date: 20110831
  Serious: Yes (Other)
  Sender: FDA-Public Use
  Company Number: US-TYCO HEALTHCARE/MALLINCKRODT-T201100575

PATIENT
  Sex: Male
  Weight: 68.027 kg

DRUGS (2)
  1. TESTOSTERONE CIPIONATE [Suspect]
     Indication: HYPOGONADISM
     Dosage: 1/2 ML, ONCE EVERY WEEK
     Route: 030
     Dates: start: 20110118, end: 20110201
  2. METHYLIN [Suspect]
     Dosage: UNK
     Route: 048
     Dates: start: 20110118

REACTIONS (2)
  - DRUG INEFFECTIVE [None]
  - POTENTIATING DRUG INTERACTION [None]
